FAERS Safety Report 14376775 (Version 1)
Quarter: 2018Q1

REPORT INFORMATION
  Report Type: Spontaneous
  Country: US (occurrence: US)
  Receive Date: 20180110
  Receipt Date: 20180110
  Transmission Date: 20180509
  Serious: Yes (Life-Threatening, Other)
  Sender: FDA-Public Use
  Company Number: None

PATIENT
  Age: 34 Year
  Sex: Female
  Weight: 101.06 kg

DRUGS (1)
  1. SUBOXONE [Suspect]
     Active Substance: BUPRENORPHINE HYDROCHLORIDE\NALOXONE HYDROCHLORIDE
     Indication: DRUG DEPENDENCE
     Route: 060
     Dates: start: 20171206, end: 20180110

REACTIONS (5)
  - Diarrhoea [None]
  - Cold sweat [None]
  - Rhinorrhoea [None]
  - Basedow^s disease [None]
  - Vomiting [None]

NARRATIVE: CASE EVENT DATE: 20171227
